FAERS Safety Report 6746099-9 (Version None)
Quarter: 2010Q2

REPORT INFORMATION
  Report Type: 
  Country: None (occurrence: None)
  Receive Date: 20100528
  Receipt Date: 20100518
  Transmission Date: 20101027
  Serious: Yes (Life-Threatening, Hospitalization)
  Sender: FDA-Public Use
  Company Number: DE-CEPHALON-2010001015

PATIENT
  Sex: Male
  Weight: 64 kg

DRUGS (4)
  1. TREANDA [Suspect]
     Indication: CHRONIC LYMPHOCYTIC LEUKAEMIA
     Route: 041
     Dates: start: 20091028, end: 20091029
  2. TREANDA [Suspect]
     Route: 041
     Dates: start: 20091127, end: 20091128
  3. RITUXIMAB [Concomitant]
     Indication: CHRONIC LYMPHOCYTIC LEUKAEMIA
     Dates: start: 20091126
  4. GLIMEPIRIDE [Concomitant]

REACTIONS (3)
  - BONE MARROW FAILURE [None]
  - HAEMORRHAGIC DISORDER [None]
  - INFECTION [None]
